FAERS Safety Report 24773900 (Version 1)
Quarter: 2024Q4

REPORT INFORMATION
  Report Type: Spontaneous
  Country: SA (occurrence: SA)
  Receive Date: 20241225
  Receipt Date: 20241225
  Transmission Date: 20250115
  Serious: Yes (Other)
  Sender: NOVARTIS
  Company Number: SA-002147023-NVSC2024SA242526

PATIENT
  Sex: Female

DRUGS (1)
  1. KISQALI [Suspect]
     Active Substance: RIBOCICLIB
     Indication: Hormone receptor positive HER2 negative breast cancer
     Dosage: 400 MG 3 WEEKS ON / ONE WEEK OFF
     Route: 065

REACTIONS (2)
  - Neutropenia [Unknown]
  - Off label use [Unknown]
